FAERS Safety Report 12511344 (Version 4)
Quarter: 2017Q2

REPORT INFORMATION
  Report Type: Report from Study
  Country: None (occurrence: AU)
  Receive Date: 20160629
  Receipt Date: 20170602
  Transmission Date: 20170830
  Serious: Yes (Other)
  Sender: FDA-Public Use
  Company Number: AU-ABBVIE-16P-008-1662383-00

PATIENT
  Age: 75 Year
  Sex: Male

DRUGS (1)
  1. LUCRIN DEPOT [Suspect]
     Active Substance: LEUPROLIDE ACETATE
     Indication: PROSTATE CANCER
     Route: 065
     Dates: start: 20160512

REACTIONS (10)
  - Hot flush [Unknown]
  - Osteoporosis [Unknown]
  - Arthralgia [Unknown]
  - Endoscopy upper gastrointestinal tract [Unknown]
  - Exploratory operation [Unknown]
  - Dyspnoea [Unknown]
  - Weight decreased [Unknown]
  - Dyspnoea [Unknown]
  - Hyperhidrosis [Unknown]
  - Colonoscopy [Unknown]

NARRATIVE: CASE EVENT DATE: 201605
